FAERS Safety Report 24742925 (Version 1)
Quarter: 2024Q4

REPORT INFORMATION
  Report Type: Spontaneous
  Country: US (occurrence: None)
  Receive Date: 20241215
  Receipt Date: 20241215
  Transmission Date: 20250114
  Serious: Yes (Other)
  Sender: Public
  Company Number: None

PATIENT
  Age: 75 Year
  Sex: Female
  Weight: 63.9 kg

DRUGS (5)
  1. EXPAREL [Suspect]
     Active Substance: BUPIVACAINE
  2. amlodepine bessylate [Concomitant]
  3. METOPROLOL [Concomitant]
     Active Substance: METOPROLOL
  4. ATORVASTATIN [Concomitant]
     Active Substance: ATORVASTATIN
  5. FISH OIL [Concomitant]
     Active Substance: FISH OIL

REACTIONS (4)
  - Constipation [None]
  - Haemorrhage [None]
  - Haemorrhoids [None]
  - Pain [None]

NARRATIVE: CASE EVENT DATE: 20241209
